FAERS Safety Report 5527573-X (Version None)
Quarter: 2007Q4

REPORT INFORMATION
  Report Type: 
  Country: None (occurrence: None)
  Receive Date: 20071128
  Receipt Date: 20071119
  Transmission Date: 20080405
  Serious: Yes (Hospitalization)
  Sender: FDA-Public Use
  Company Number: JP-BRISTOL-MYERS SQUIBB COMPANY-12383071

PATIENT
  Age: 55 Year
  Sex: Male

DRUGS (4)
  1. EFAVIRENZ [Suspect]
     Indication: HIV INFECTION
     Route: 048
     Dates: start: 20030618, end: 20030905
  2. INDINIVIR SULFATE [Suspect]
     Indication: HIV INFECTION
     Route: 048
     Dates: end: 20030617
  3. STAVUDINE [Concomitant]
     Indication: HIV INFECTION
     Dosage: 22-SEP-1998 TO 05-SEP-2003, 16-SEP-2003 TO CONT.
     Dates: start: 19980922, end: 20030905
  4. LAMIVUDINE [Concomitant]
     Indication: HIV INFECTION
     Dosage: 22-SEP-1998 TO 05-SEP-2003, 16-SEP-2003 TO CONT.
     Dates: start: 19980922, end: 20030905

REACTIONS (3)
  - PHOTOSENSITIVITY REACTION [None]
  - RENAL IMPAIRMENT [None]
  - SEBORRHOEIC DERMATITIS [None]
